FAERS Safety Report 8887211 (Version 2)
Quarter: 2012Q4

REPORT INFORMATION
  Report Type: Report from Study
  Country: AU (occurrence: AU)
  Receive Date: 20121105
  Receipt Date: 20121130
  Transmission Date: 20130627
  Serious: Yes (Life-Threatening, Hospitalization)
  Sender: FDA-Public Use
  Company Number: AU-ROCHE-1152291

PATIENT
  Sex: Male
  Weight: 96 kg

DRUGS (4)
  1. TOCILIZUMAB [Suspect]
     Indication: RHEUMATOID ARTHRITIS
     Dosage: 800mg total monthly dose
     Route: 042
     Dates: start: 201008
  2. FOSAMAX [Concomitant]
     Route: 065
  3. PREDNISOLONE [Concomitant]
     Route: 065
  4. ARAVA [Concomitant]
     Route: 065

REACTIONS (1)
  - Myocardial infarction [Recovering/Resolving]
